FAERS Safety Report 9200356 (Version 2)
Quarter: 2013Q2

REPORT INFORMATION
  Report Type: Spontaneous
  Country: SE (occurrence: SE)
  Receive Date: 20130329
  Receipt Date: 20130405
  Transmission Date: 20140414
  Serious: Yes (Other)
  Sender: FDA-Public Use
  Company Number: SE-PFIZER INC-2013097143

PATIENT
  Age: 58 Year
  Sex: Male

DRUGS (1)
  1. VIAGRA [Suspect]
     Dosage: 50 MG OR 100 MG

REACTIONS (3)
  - Sleep apnoea syndrome [Unknown]
  - Condition aggravated [Unknown]
  - Fatigue [Unknown]
